FAERS Safety Report 7902943-0 (Version None)
Quarter: 2011Q4

REPORT INFORMATION
  Report Type: 
  Country: None (occurrence: None)
  Receive Date: 20111109
  Receipt Date: 20111031
  Transmission Date: 20120403
  Serious: Yes (Other)
  Sender: FDA-Public Use
  Company Number: JP-JNJFOC-20101209033

PATIENT
  Age: 23 Year
  Sex: Male
  Weight: 44 kg

DRUGS (21)
  1. REMICADE [Suspect]
     Route: 042
     Dates: start: 20090501
  2. REMICADE [Suspect]
     Route: 042
     Dates: start: 20081107
  3. REMICADE [Suspect]
     Indication: CROHN'S DISEASE
     Route: 042
     Dates: start: 20090820
  4. REMICADE [Suspect]
     Route: 042
     Dates: start: 20090306
  5. RABEPRAZOLE SODIUM [Concomitant]
     Indication: DUODENAL ULCER
     Route: 048
     Dates: start: 20080925, end: 20081205
  6. REMICADE [Suspect]
     Route: 042
     Dates: start: 20090626
  7. REMICADE [Suspect]
     Route: 042
     Dates: start: 20090501
  8. REMICADE [Suspect]
     Route: 042
     Dates: start: 20090109
  9. REMICADE [Suspect]
     Route: 042
     Dates: start: 20081107
  10. REMICADE [Suspect]
     Route: 042
     Dates: start: 20090306
  11. FERROUS CITRATE [Concomitant]
     Indication: IRON DEFICIENCY ANAEMIA
     Route: 048
     Dates: start: 20090501
  12. REMICADE [Suspect]
     Route: 042
     Dates: start: 20081009
  13. REMICADE [Suspect]
     Route: 042
     Dates: start: 20081009
  14. REMICADE [Suspect]
     Route: 042
     Dates: start: 20090109
  15. PENTASA [Concomitant]
     Indication: CROHN'S DISEASE
     Route: 048
     Dates: start: 20080925, end: 20090925
  16. REMICADE [Suspect]
     Indication: FISTULA
     Route: 042
     Dates: start: 20090820
  17. REMICADE [Suspect]
     Route: 042
     Dates: start: 20090626
  18. REMICADE [Suspect]
     Route: 042
     Dates: start: 20080925
  19. REMICADE [Suspect]
     Route: 042
     Dates: start: 20080925
  20. ZANTAC [Concomitant]
     Indication: DUODENAL ULCER
     Route: 048
     Dates: start: 20051206
  21. CEFAZOLIN SODIUM [Concomitant]
     Indication: DIARRHOEA
     Route: 048
     Dates: start: 20080925

REACTIONS (1)
  - PANCREATITIS [None]
